FAERS Safety Report 5319312-2 (Version None)
Quarter: 2007Q2

REPORT INFORMATION
  Report Type: 
  Country: None (occurrence: None)
  Receive Date: 20070508
  Receipt Date: 20070430
  Transmission Date: 20071010
  Serious: Yes (Other)
  Sender: FDA-Public Use
  Company Number: US-ELI_LILLY_AND_COMPANY-US200704003346

PATIENT
  Age: 46 Year
  Sex: Female

DRUGS (1)
  1. HUMATROPE [Suspect]
     Dosage: 0.3 MG, UNK
     Dates: start: 20061201

REACTIONS (3)
  - BACK DISORDER [None]
  - INCORRECT DOSE ADMINISTERED [None]
  - PHARMACEUTICAL PRODUCT COMPLAINT [None]
